FAERS Safety Report 7412940-X (Version None)
Quarter: 2011Q2

REPORT INFORMATION
  Report Type: 
  Country: None (occurrence: None)
  Receive Date: 20110408
  Receipt Date: 20110408
  Transmission Date: 20111010
  Serious: Yes (Other)
  Sender: FDA-Public Use
  Company Number: None

PATIENT
  Age: 37 Year
  Sex: Female
  Weight: 113.3993 kg

DRUGS (1)
  1. CYMBALTA [Suspect]
     Indication: DEPRESSION
     Dates: start: 20100901, end: 20110315

REACTIONS (6)
  - DRUG WITHDRAWAL SYNDROME [None]
  - NAUSEA [None]
  - FATIGUE [None]
  - DISTURBANCE IN ATTENTION [None]
  - PARAESTHESIA [None]
  - IRRITABILITY [None]
